FAERS Safety Report 7412234-2 (Version None)
Quarter: 2011Q2

REPORT INFORMATION
  Report Type: 
  Country: None (occurrence: None)
  Receive Date: 20110405
  Receipt Date: 20110324
  Transmission Date: 20111010
  Serious: Yes (Death, Hospitalization)
  Sender: FDA-Public Use
  Company Number: KV201000364

PATIENT
  Age: 65 Year
  Sex: Male
  Weight: 84.8 kg

DRUGS (32)
  1. COLCHICINE [Concomitant]
  2. DOCUSATE SODIUM (DOCUSATE SODIUM) [Concomitant]
  3. EZETIMIBE [Concomitant]
  4. GUAIFENESIN [Concomitant]
  5. ALLOPURINOL [Concomitant]
  6. CARBIDOPA/LEVODOPA (CARBIDOPA, LEVODOPA) [Concomitant]
  7. CEFAZOLIN [Concomitant]
  8. LEVOTHYROXINE (LEVOTHYROXINE) [Concomitant]
  9. OXYCODONE (OXYCODONE) [Concomitant]
  10. MAGNESIUM HYDROXIDE TAB [Concomitant]
  11. AMOXICILLIN [Concomitant]
  12. FLUNISOLIDE (FLUNISOLIDE) [Concomitant]
  13. RABEPRAZOLE (RABEPRAZOLE) [Concomitant]
  14. KETOTIFEN (KETOTIFEN) [Concomitant]
  15. FISH OIL (FISH OIL) [Concomitant]
  16. FLUTICASONE PROPIONATE [Concomitant]
  17. BISACODYL (BISACODYL) [Concomitant]
  18. DIVALPROEX (VALPROATE SEMISODIUM) [Concomitant]
  19. FLUOXETINE [Concomitant]
  20. ROPINIROLE [Concomitant]
  21. OMEPRAZOLE [Concomitant]
  22. METHOCARBAMOL [Concomitant]
  23. TEMAZEPAM [Concomitant]
  24. FLUOCINONIDE [Concomitant]
  25. TRAZODONE HCL [Concomitant]
  26. BUSPIRONE HYDROCHLORIDE [Suspect]
     Indication: ANXIETY
     Dosage: 5 MG, TID, ORAL, 10 MG, TID, ORAL
     Route: 048
     Dates: start: 20040512, end: 20081208
  27. BUSPIRONE HYDROCHLORIDE [Suspect]
     Indication: POST-TRAUMATIC STRESS DISORDER
     Dosage: 5 MG, TID, ORAL, 10 MG, TID, ORAL
     Route: 048
     Dates: start: 20040512, end: 20081208
  28. BUSPIRONE HYDROCHLORIDE [Suspect]
     Indication: ANXIETY
     Dosage: 5 MG, TID, ORAL, 10 MG, TID, ORAL
     Route: 048
     Dates: start: 20040330, end: 20040512
  29. BUSPIRONE HYDROCHLORIDE [Suspect]
     Indication: POST-TRAUMATIC STRESS DISORDER
     Dosage: 5 MG, TID, ORAL, 10 MG, TID, ORAL
     Route: 048
     Dates: start: 20040330, end: 20040512
  30. AMITRIPTYLINE HCL [Concomitant]
  31. ASPIRIN [Concomitant]
  32. DOXEPIN HYDROCHLORIDE [Concomitant]

REACTIONS (29)
  - SOMNOLENCE [None]
  - FACIAL BONES FRACTURE [None]
  - FALL [None]
  - DYSPNOEA [None]
  - GENERAL PHYSICAL HEALTH DETERIORATION [None]
  - RHINALGIA [None]
  - HEPATIC CONGESTION [None]
  - CARDIAC FAILURE CONGESTIVE [None]
  - CONGESTIVE CARDIOMYOPATHY [None]
  - SINUS HEADACHE [None]
  - CORONARY ARTERY DISEASE [None]
  - HEPATIC ENZYME ABNORMAL [None]
  - DIZZINESS [None]
  - OEDEMA PERIPHERAL [None]
  - JAUNDICE [None]
  - RHINITIS ALLERGIC [None]
  - OVERDOSE [None]
  - VISION BLURRED [None]
  - LACERATION [None]
  - PANIC ATTACK [None]
  - RENAL FAILURE [None]
  - HYPOTHYROIDISM [None]
  - FATIGUE [None]
  - CLAVICLE FRACTURE [None]
  - ANXIETY [None]
  - EPISTAXIS [None]
  - SYNCOPE [None]
  - VASOMOTOR RHINITIS [None]
  - DEPRESSION [None]
